FAERS Safety Report 17981777 (Version 2)
Quarter: 2020Q3

REPORT INFORMATION
  Report Type: Report from Study
  Country: JP (occurrence: JP)
  Receive Date: 20200706
  Receipt Date: 20200922
  Transmission Date: 20201103
  Serious: Yes (Hospitalization, Other)
  Sender: FDA-Public Use
  Company Number: JP-ASTELLAS-2020JP009347

PATIENT
  Age: 71 Year
  Sex: Male
  Weight: 54 kg

DRUGS (12)
  1. MEROPENEM [MEROPENEM TRIHYDRATE] [Suspect]
     Active Substance: MEROPENEM
     Indication: SEPSIS
     Dosage: UNK UNK, UNKNOWN FREQ.
     Route: 065
  2. MEROPENEM [MEROPENEM TRIHYDRATE] [Suspect]
     Active Substance: MEROPENEM
     Indication: PNEUMONIA
     Dosage: UNK UNK, UNKNOWN FREQ.
     Route: 065
  3. VALACICLOVIR HYDROCHLORIDE [Concomitant]
     Active Substance: VALACYCLOVIR HYDROCHLORIDE
     Indication: PROPHYLAXIS
     Dosage: 500 MG/DAY, UNKNOWN FREQ.
     Route: 048
  4. ASP2215 [Suspect]
     Active Substance: GILTERITINIB
     Route: 048
     Dates: start: 20190710, end: 20190717
  5. ASP2215 [Suspect]
     Active Substance: GILTERITINIB
     Indication: ACUTE MYELOID LEUKAEMIA RECURRENT
     Route: 048
     Dates: start: 20190422, end: 20190705
  6. VFEND [Concomitant]
     Active Substance: VORICONAZOLE
     Indication: PROPHYLAXIS
     Dosage: 400 MG/DAY, UNKNOWN FREQ.
     Route: 048
  7. DAIPHEN [Concomitant]
     Active Substance: SULFAMETHOXAZOLE\TRIMETHOPRIM
     Indication: PROPHYLAXIS
     Dosage: 0.5 DF/DAY, UNKNOWN FREQ.
     Route: 048
  8. ASP2215 [Suspect]
     Active Substance: GILTERITINIB
     Route: 048
     Dates: start: 20190818
  9. JADENU [Concomitant]
     Active Substance: DEFERASIROX
     Indication: PROPHYLAXIS
     Dosage: 90 MG/DAY, UNKNOWN FREQ.
     Route: 048
  10. ASP2215 [Suspect]
     Active Substance: GILTERITINIB
     Route: 048
     Dates: start: 20190726, end: 20190802
  11. ASP2215 [Suspect]
     Active Substance: GILTERITINIB
     Route: 048
     Dates: start: 20190718, end: 20190725
  12. LEVOFLOXACIN HEMIHYDRATE [Concomitant]
     Active Substance: LEVOFLOXACIN
     Indication: PROPHYLAXIS
     Dosage: 500 MG/DAY, UNKNOWN FREQ.
     Route: 048

REACTIONS (5)
  - Pneumonia [Recovered/Resolved]
  - Liver disorder [Recovered/Resolved]
  - Sepsis [Recovered/Resolved]
  - Disseminated intravascular coagulation [Recovered/Resolved]
  - Myelosuppression [Recovered/Resolved]

NARRATIVE: CASE EVENT DATE: 20190531
